FAERS Safety Report 7401161-2 (Version None)
Quarter: 2011Q2

REPORT INFORMATION
  Report Type: 
  Country: None (occurrence: None)
  Receive Date: 20110407
  Receipt Date: 20110330
  Transmission Date: 20111010
  Serious: Yes (Death, Hospitalization, Other)
  Sender: FDA-Public Use
  Company Number: US-AMGEN-USASP2011017023

PATIENT
  Age: 67 Year
  Sex: Male
  Weight: 136.5 kg

DRUGS (1)
  1. ARANESP [Suspect]
     Indication: RENAL FAILURE CHRONIC
     Dosage: 300 A?G, Q2WK
     Dates: start: 20100922, end: 20101101

REACTIONS (16)
  - DIZZINESS [None]
  - ARTHRALGIA [None]
  - DEATH [None]
  - DYSPNOEA [None]
  - HAEMOGLOBIN INCREASED [None]
  - PYREXIA [None]
  - MUSCLE SPASMS [None]
  - HOSPITALISATION [None]
  - PAIN IN EXTREMITY [None]
  - ABDOMINAL PAIN [None]
  - ASTHENIA [None]
  - RESPIRATORY TRACT CONGESTION [None]
  - ATRIAL FIBRILLATION [None]
  - HYPERGLYCAEMIA [None]
  - HYPERHIDROSIS [None]
  - FATIGUE [None]
